FAERS Safety Report 10708202 (Version 1)
Quarter: 2015Q1

REPORT INFORMATION
  Report Type: Spontaneous
  Country: DE (occurrence: DE)
  Receive Date: 20150113
  Receipt Date: 20150113
  Transmission Date: 20150721
  Serious: Yes (Congenital Anomaly)
  Sender: FDA-Public Use
  Company Number: GXKR2015DE000475

PATIENT

DRUGS (3)
  1. PREDNISOLON [Concomitant]
     Active Substance: PREDNISOLONE
     Indication: PROPHYLAXIS OF ABORTION
     Dosage: MATERNAL DOSE: 2.5 MG, QD
     Route: 064
     Dates: start: 20140515, end: 20140815
  2. FOLSAEURE [Concomitant]
     Active Substance: FOLIC ACID
     Indication: PROPHYLAXIS OF NEURAL TUBE DEFECT
     Route: 064
     Dates: start: 20140515, end: 20140928
  3. METFORMIN [Suspect]
     Active Substance: METFORMIN HYDROCHLORIDE
     Indication: INSULIN RESISTANCE
     Dosage: MATERNAL DOSE: 1275 MG, QD
     Route: 064
     Dates: start: 20140515, end: 20140715

REACTIONS (6)
  - Hypoplastic left heart syndrome [Not Recovered/Not Resolved]
  - Mitral valve atresia [Not Recovered/Not Resolved]
  - Aorta hypoplasia [Not Recovered/Not Resolved]
  - Asplenia [Not Recovered/Not Resolved]
  - Pulmonary hypoplasia [Not Recovered/Not Resolved]
  - Congenital cystic kidney disease [Not Recovered/Not Resolved]
